FAERS Safety Report 4797140-4 (Version None)
Quarter: 2005Q4

REPORT INFORMATION
  Report Type: 
  Country: None (occurrence: None)
  Receive Date: 20051013
  Receipt Date: 20051005
  Transmission Date: 20060501
  Serious: Yes (Life-Threatening, Hospitalization)
  Sender: FDA-Public Use
  Company Number: US-ROCHE-420261

PATIENT
  Age: 46 Year
  Sex: Male
  Weight: 68 kg

DRUGS (5)
  1. PEG-INTERFERON ALFA 2A (RO 25-8310) [Suspect]
     Dosage: FORMULATION REPORTED AS INJECTABLE SOLUTION.
     Route: 058
     Dates: start: 20050307, end: 20050627
  2. RIBAVIRIN [Suspect]
     Route: 048
     Dates: start: 20050307, end: 20050627
  3. ZOLPIDEM TARTRATE [Concomitant]
     Indication: SOMNOLENCE
     Dosage: REPORTED AS 10 MG AT BEDTIME.
  4. CITALOPRAM HYDROBROMIDE [Concomitant]
     Indication: ANTIDEPRESSANT THERAPY
  5. TEMAZEPAM [Concomitant]
     Indication: SOMNOLENCE
     Dosage: REPORTED AS 15 MG AT BEDTIME.

REACTIONS (6)
  - CEREBRAL HAEMORRHAGE [None]
  - COMA [None]
  - HEAD INJURY [None]
  - PNEUMONIA [None]
  - ROAD TRAFFIC ACCIDENT [None]
  - SPLENIC RUPTURE [None]
